FAERS Safety Report 23596761 (Version 1)
Quarter: 2024Q1

REPORT INFORMATION
  Report Type: Spontaneous
  Country: CN (occurrence: CN)
  Receive Date: 20240305
  Receipt Date: 20240305
  Transmission Date: 20240410
  Serious: Yes (Hospitalization)
  Sender: FDA-Public Use
  Company Number: CN-PFIZER INC-PV202400029649

PATIENT
  Age: 40 Year
  Sex: Male
  Weight: 62.5 kg

DRUGS (19)
  1. CYTARABINE [Suspect]
     Active Substance: CYTARABINE
     Indication: Acute myeloid leukaemia
     Dosage: 0.173G*7D BID D1-D7
     Route: 041
     Dates: start: 20240131, end: 20240206
  2. POSACONAZOLE [Suspect]
     Active Substance: POSACONAZOLE
     Indication: Antifungal prophylaxis
     Dosage: 300 MG, 2X/DAY
     Route: 048
     Dates: start: 20240204, end: 20240204
  3. POSACONAZOLE [Suspect]
     Active Substance: POSACONAZOLE
     Dosage: 300 MG, 1X/DAY
     Route: 048
     Dates: start: 20240205, end: 20240209
  4. POSACONAZOLE [Suspect]
     Active Substance: POSACONAZOLE
     Indication: Antifungal prophylaxis
     Dosage: 300 MG, 1X/DAY
     Route: 041
     Dates: start: 20240209, end: 20240219
  5. CEFOPERAZONE SODIUM\SULBACTAM SODIUM [Suspect]
     Active Substance: CEFOPERAZONE SODIUM\SULBACTAM SODIUM
     Indication: Agranulocytosis
     Dosage: 2 G, 3X/DAY
     Route: 041
     Dates: start: 20240212, end: 20240224
  6. CEFOPERAZONE SODIUM\SULBACTAM SODIUM [Suspect]
     Active Substance: CEFOPERAZONE SODIUM\SULBACTAM SODIUM
     Indication: Pyrexia
  7. TIGECYCLINE [Suspect]
     Active Substance: TIGECYCLINE
     Indication: Agranulocytosis
     Dosage: 100 MG, 2X/DAY
     Route: 041
     Dates: start: 20240205, end: 20240214
  8. TIGECYCLINE [Suspect]
     Active Substance: TIGECYCLINE
     Indication: Pyrexia
  9. IDARUBICIN HYDROCHLORIDE [Suspect]
     Active Substance: IDARUBICIN HYDROCHLORIDE
     Indication: Acute myeloid leukaemia
     Dosage: 20MG*3D QD D1-D3
     Route: 041
     Dates: start: 20240131, end: 20240202
  10. OSELTAMIVIR PHOSPHATE [Suspect]
     Active Substance: OSELTAMIVIR PHOSPHATE
     Indication: Influenza
     Dosage: 75 MG, 2X/DAY
     Route: 048
     Dates: start: 20240202, end: 20240206
  11. DAPTOMYCIN [Suspect]
     Active Substance: DAPTOMYCIN
     Indication: Agranulocytosis
     Dosage: 0.5 G, 1X/DAY
     Route: 041
     Dates: start: 20240204, end: 20240222
  12. DAPTOMYCIN [Suspect]
     Active Substance: DAPTOMYCIN
     Indication: Pyrexia
  13. AMPHOTEC [Concomitant]
     Active Substance: AMPHOTERICIN B
     Indication: Antifungal treatment
     Dosage: 50 MG, 1X/DAY
     Route: 041
     Dates: start: 20240220, end: 20240220
  14. AMPHOTEC [Concomitant]
     Active Substance: AMPHOTERICIN B
     Dosage: 100 MG, 1X/DAY
     Route: 041
     Dates: start: 20240221, end: 20240221
  15. AMPHOTEC [Concomitant]
     Active Substance: AMPHOTERICIN B
     Dosage: 150 MG, 1X/DAY
     Route: 041
     Dates: start: 20240222, end: 20240222
  16. PIPERACILLIN SODIUM\TAZOBACTAM SODIUM [Concomitant]
     Active Substance: PIPERACILLIN SODIUM\TAZOBACTAM SODIUM
     Indication: Agranulocytosis
     Dosage: 4.5 G, 3X/DAY
     Route: 041
     Dates: start: 20240128, end: 20240201
  17. PIPERACILLIN SODIUM\TAZOBACTAM SODIUM [Concomitant]
     Active Substance: PIPERACILLIN SODIUM\TAZOBACTAM SODIUM
     Indication: Pyrexia
  18. MEROPENEM [Concomitant]
     Active Substance: MEROPENEM
     Indication: Agranulocytosis
     Dosage: 1 G, 3X/DAY
     Route: 041
     Dates: start: 20240201, end: 20240212
  19. MEROPENEM [Concomitant]
     Active Substance: MEROPENEM
     Indication: Pyrexia

REACTIONS (1)
  - Hepatic enzyme increased [Recovering/Resolving]

NARRATIVE: CASE EVENT DATE: 20240215
